FAERS Safety Report 18955942 (Version 1)
Quarter: 2021Q1

REPORT INFORMATION
  Report Type: Spontaneous
  Country: GB (occurrence: GB)
  Receive Date: 20210301
  Receipt Date: 20210301
  Transmission Date: 20210420
  Serious: Yes (Congenital Anomaly, Other)
  Sender: FDA-Public Use
  Company Number: GB-TEVA-2021-GB-1882064

PATIENT

DRUGS (4)
  1. AUROBINDO PHARMA ATAZANAVIR [Suspect]
     Active Substance: ATAZANAVIR
     Dosage: 300 MILLIGRAM DAILY;
     Route: 064
     Dates: start: 20190205
  2. EVOTAZ [Suspect]
     Active Substance: ATAZANAVIR SULFATE\COBICISTAT
     Dosage: 1 DOSAGE FORMS DAILY; (1 TAB/CAPS)
     Route: 064
     Dates: start: 20171014, end: 20190204
  3. EMTRICITABINE AND TENOFOVIR [Suspect]
     Active Substance: EMTRICITABINE\TENOFOVIR
     Dosage: 1 DOSAGE FORM (1 TAB/CAPS) (TENOFOVIR DISOPROXIL FUMARATE+EMTRICITABINE)
     Route: 064
     Dates: start: 20101110
  4. RITONAVIR. [Suspect]
     Active Substance: RITONAVIR
     Dosage: 100 MG/KG/HR
     Route: 064
     Dates: start: 20190205

REACTIONS (2)
  - Foetal exposure during pregnancy [Unknown]
  - Spina bifida [Unknown]
